FAERS Safety Report 4991419-9 (Version None)
Quarter: 2006Q2

REPORT INFORMATION
  Report Type: 
  Country: None (occurrence: None)
  Receive Date: 20060502
  Receipt Date: 20060419
  Transmission Date: 20061013
  Serious: No
  Sender: FDA-Public Use
  Company Number: 2006-141615-NL

PATIENT
  Age: 66 Year
  Sex: Female

DRUGS (2)
  1. ROCURONIUM BROMIDE [Suspect]
     Dosage: 1 DF ONCE INTRAVENOUS NOS
     Route: 042
  2. VECURONIUM BROMIDE [Suspect]
     Dosage: 1 DF ONCE INTRAVENOUS NOS
     Route: 042

REACTIONS (3)
  - ANAPHYLACTIC REACTION [None]
  - BRONCHOSPASM [None]
  - CIRCULATORY COLLAPSE [None]
